FAERS Safety Report 7000403-5 (Version None)
Quarter: 2010Q3

REPORT INFORMATION
  Report Type: 
  Country: None (occurrence: None)
  Receive Date: 20100920
  Receipt Date: 20100114
  Transmission Date: 20110219
  Serious: No
  Sender: FDA-Public Use
  Company Number: US-ASTRAZENECA-2010SE01846

PATIENT
  Age: 60 Year
  Sex: Female
  Weight: 83.9 kg

DRUGS (5)
  1. SEROQUEL [Suspect]
     Indication: SLEEP DISORDER
     Dosage: FREQUENCY IS UP TO THREE TIMES A DAY
     Route: 048
     Dates: start: 20100111, end: 20100112
  2. AMBIEN [Concomitant]
     Indication: SLEEP DISORDER
  3. XANAX [Concomitant]
     Indication: ANXIETY
  4. GENERIC ZANTAC [Concomitant]
     Indication: ABDOMINAL DISCOMFORT
  5. TUMMY RELAXANT [Concomitant]
     Indication: ABDOMINAL DISCOMFORT

REACTIONS (2)
  - DRUG INTOLERANCE [None]
  - NASAL CONGESTION [None]
